FAERS Safety Report 25691500 (Version 1)
Quarter: 2025Q3

REPORT INFORMATION
  Report Type: Spontaneous
  Country: CA (occurrence: CA)
  Receive Date: 20250818
  Receipt Date: 20250818
  Transmission Date: 20251020
  Serious: Yes (Hospitalization)
  Sender: B. BRAUN MEDICAL INC.
  Company Number: None

PATIENT
  Age: 77 Year
  Sex: Male
  Weight: 70 kg

DRUGS (29)
  1. ACETAMINOPHEN [Suspect]
     Active Substance: ACETAMINOPHEN
  2. BETAMETHASONE [Suspect]
     Active Substance: BETAMETHASONE
  3. CYCLOPHOSPHAMIDE [Suspect]
     Active Substance: CYCLOPHOSPHAMIDE
  4. DIPHENHYDRAMINE [Suspect]
     Active Substance: DIPHENHYDRAMINE
  5. ENOXAPARIN [Suspect]
     Active Substance: ENOXAPARIN
  6. FILGRASTIM [Suspect]
     Active Substance: FILGRASTIM
  7. FLUCONAZOLE [Suspect]
     Active Substance: FLUCONAZOLE
  8. FLUDARABINE [Suspect]
     Active Substance: FLUDARABINE PHOSPHATE
  9. LEUPROLIDE [Suspect]
     Active Substance: LEUPROLIDE
  10. MOXIFLOXACIN [Suspect]
     Active Substance: MOXIFLOXACIN
  11. GRAMICIDIN\NEOMYCIN\POLYMYXIN B SULFATE [Suspect]
     Active Substance: GRAMICIDIN\NEOMYCIN\POLYMYXIN B SULFATE
  12. POLYETHYLENE GLYCOL [Suspect]
     Active Substance: POLYETHYLENE GLYCOL
  13. POLYETHYLENE GLYCOL\POTASSIUM CHLORIDE\SODIUM BICARBONATE [Suspect]
     Active Substance: POLYETHYLENE GLYCOL\POTASSIUM CHLORIDE\SODIUM BICARBONATE
  14. TECARTUS [Suspect]
     Active Substance: BREXUCABTAGENE AUTOLEUCEL
  15. ALLOPURINOL [Concomitant]
     Active Substance: ALLOPURINOL
  16. AMLODIPINE [Concomitant]
     Active Substance: AMLODIPINE BESYLATE
  17. CALCIUM CARBONATE [Concomitant]
     Active Substance: CALCIUM CARBONATE
  18. HYDROCORTISONE [Concomitant]
     Active Substance: HYDROCORTISONE
  19. IBRUTINIB [Concomitant]
     Active Substance: IBRUTINIB
  20. LORAZEPAM [Concomitant]
     Active Substance: LORAZEPAM
  21. MESNA [Concomitant]
     Active Substance: MESNA
  22. METOCLOPRAMIDE [Concomitant]
     Active Substance: METOCLOPRAMIDE
  23. NUBEQA [Concomitant]
     Active Substance: DAROLUTAMIDE
  24. OLANZAPINE [Concomitant]
     Active Substance: OLANZAPINE
  25. ONDANSETRON [Concomitant]
     Active Substance: ONDANSETRON
  26. PANTOPRAZOLE [Concomitant]
     Active Substance: PANTOPRAZOLE
  27. PROCHLORPERAZINE [Concomitant]
     Active Substance: PROCHLORPERAZINE
  28. SULFAMETHOXAZOLE\TRIMETHOPRIM [Concomitant]
     Active Substance: SULFAMETHOXAZOLE\TRIMETHOPRIM
  29. VALACYCLOVIR [Concomitant]
     Active Substance: VALACYCLOVIR HYDROCHLORIDE

REACTIONS (2)
  - Cytokine release syndrome [Recovered/Resolved]
  - Febrile neutropenia [Recovered/Resolved]
